FAERS Safety Report 6265949-6 (Version None)
Quarter: 2009Q3

REPORT INFORMATION
  Report Type: 
  Country: None (occurrence: None)
  Receive Date: 20090709
  Receipt Date: 20090624
  Transmission Date: 20100115
  Serious: Yes (Death)
  Sender: FDA-Public Use
  Company Number: 2009000967

PATIENT
  Age: 79 Year
  Sex: Male

DRUGS (4)
  1. ERLOTINIB (ERLOTINIB) (TABLET) (ERLOTINIB) [Suspect]
     Indication: NON-SMALL CELL LUNG CANCER
     Dosage: (150 MG, QD), ORAL, (100 MG, QD), ORAL
     Route: 048
     Dates: start: 20060710, end: 20060811
  2. ERLOTINIB (ERLOTINIB) (TABLET) (ERLOTINIB) [Suspect]
     Indication: NON-SMALL CELL LUNG CANCER
     Dosage: (150 MG, QD), ORAL, (100 MG, QD), ORAL
     Route: 048
     Dates: start: 20060812
  3. ATENOLOL [Concomitant]
  4. LERCANIDIPINE [Concomitant]

REACTIONS (1)
  - RESPIRATORY FAILURE [None]
